FAERS Safety Report 19660699 (Version 1)
Quarter: 2021Q3

REPORT INFORMATION
  Report Type: Spontaneous
  Country: CN (occurrence: CN)
  Receive Date: 20210805
  Receipt Date: 20210805
  Transmission Date: 20211014
  Serious: Yes (Hospitalization)
  Sender: FDA-Public Use
  Company Number: CN-EISAI MEDICAL RESEARCH-EC-2021-097136

PATIENT
  Age: 42 Year
  Sex: Female

DRUGS (6)
  1. REBAMIPIDE [Suspect]
     Active Substance: REBAMIPIDE
     Indication: GASTRIC ULCER
     Dosage: 300 MG DAILY (FREQUENCY UNKNOWN)
     Route: 041
     Dates: start: 20210608, end: 20210611
  2. SODIUM CHLORIDE. [Concomitant]
     Active Substance: SODIUM CHLORIDE
     Indication: VEHICLE SOLUTION USE
     Dosage: 300 ML DAILY (FREQUENCY UNKNOWN)
     Route: 041
     Dates: start: 20210611, end: 20210613
  3. PARIET [Suspect]
     Active Substance: RABEPRAZOLE SODIUM
     Indication: ANTACID THERAPY
     Dosage: 40 MG DAILY (FREQUENCY UNKNOWN)
     Route: 048
     Dates: start: 20210608, end: 20210611
  4. OMEPRAZOLE SODIUM [Suspect]
     Active Substance: OMEPRAZOLE SODIUM
     Indication: ANTACID THERAPY
     Dosage: 40 MG DAILY (FREQUENCY UNKNOWN)
     Route: 041
     Dates: start: 20210611, end: 20210612
  5. SODIUM CHLORIDE. [Concomitant]
     Active Substance: SODIUM CHLORIDE
     Indication: ANTACID THERAPY
  6. PIPERACILLIN SODIUM SULBACTAM SODIUM [Suspect]
     Active Substance: PIPERACILLIN SODIUM\SULBACTAM SODIUM
     Indication: ANTI-INFECTIVE THERAPY
     Route: 041
     Dates: start: 20210611, end: 20210613

REACTIONS (1)
  - Transaminases increased [Unknown]

NARRATIVE: CASE EVENT DATE: 20210614
